FAERS Safety Report 23433098 (Version 4)
Quarter: 2024Q4

REPORT INFORMATION
  Report Type: Spontaneous
  Country: AU (occurrence: AU)
  Receive Date: 20240123
  Receipt Date: 20241212
  Transmission Date: 20250115
  Serious: Yes (Life-Threatening, Other)
  Sender: PERRIGO
  Company Number: None

PATIENT
  Sex: Male

DRUGS (26)
  1. ACETAMINOPHEN [Interacting]
     Active Substance: ACETAMINOPHEN
     Indication: Suicide attempt
     Dosage: UNK
     Route: 065
  2. ACETAMINOPHEN [Interacting]
     Active Substance: ACETAMINOPHEN
     Indication: Intentional overdose
     Dosage: UNK
     Route: 065
  3. ESOMEPRAZOLE MAGNESIUM [Interacting]
     Active Substance: ESOMEPRAZOLE MAGNESIUM
     Indication: Intentional overdose
     Route: 065
  4. ESOMEPRAZOLE MAGNESIUM [Interacting]
     Active Substance: ESOMEPRAZOLE MAGNESIUM
     Indication: Suicide attempt
  5. VALSARTAN [Interacting]
     Active Substance: VALSARTAN
     Indication: Suicide attempt
     Route: 065
  6. VALSARTAN [Interacting]
     Active Substance: VALSARTAN
     Indication: Intentional overdose
  7. MOCLOBEMIDE [Interacting]
     Active Substance: MOCLOBEMIDE
     Indication: Intentional overdose
     Route: 065
  8. MOCLOBEMIDE [Interacting]
     Active Substance: MOCLOBEMIDE
     Indication: Suicide attempt
  9. AMLODIPINE [Interacting]
     Active Substance: AMLODIPINE BESYLATE
     Indication: Suicide attempt
     Route: 065
  10. XELJANZ [Interacting]
     Active Substance: TOFACITINIB CITRATE
     Indication: Suicide attempt
     Route: 048
  11. ESCITALOPRAM OXALATE [Interacting]
     Active Substance: ESCITALOPRAM OXALATE
     Indication: Suicide attempt
     Route: 065
  12. ESCITALOPRAM OXALATE [Interacting]
     Active Substance: ESCITALOPRAM OXALATE
     Indication: Intentional overdose
     Route: 065
  13. VENLAFAXINE HYDROCHLORIDE [Interacting]
     Active Substance: VENLAFAXINE HYDROCHLORIDE
     Indication: Intentional overdose
     Route: 065
  14. TRAMADOL HYDROCHLORIDE [Interacting]
     Active Substance: TRAMADOL HYDROCHLORIDE
     Indication: Suicide attempt
     Route: 065
  15. FLUOXETINE HYDROCHLORIDE [Interacting]
     Active Substance: FLUOXETINE HYDROCHLORIDE
     Indication: Intentional overdose
     Route: 065
  16. FLUOXETINE HYDROCHLORIDE [Interacting]
     Active Substance: FLUOXETINE HYDROCHLORIDE
     Indication: Suicide attempt
     Route: 065
  17. AMLODIPINE BESYLATE\VALSARTAN [Interacting]
     Active Substance: AMLODIPINE BESYLATE\VALSARTAN
     Indication: Intentional overdose
     Route: 065
  18. ESOMEPRAZOLE MAGNESIUM [Interacting]
     Active Substance: ESOMEPRAZOLE MAGNESIUM
     Indication: Intentional overdose
     Route: 065
  19. ESOMEPRAZOLE MAGNESIUM [Interacting]
     Active Substance: ESOMEPRAZOLE MAGNESIUM
     Indication: Suicide attempt
     Route: 048
  20. MOCLOBEMIDE [Suspect]
     Active Substance: MOCLOBEMIDE
     Indication: Product used for unknown indication
     Dosage: UNK
     Route: 065
  21. AMLODIPINE BESYLATE\VALSARTAN [Interacting]
     Active Substance: AMLODIPINE BESYLATE\VALSARTAN
     Indication: Intentional overdose
     Dosage: UNK
  22. ESCITALOPRAM OXALATE [Interacting]
     Active Substance: ESCITALOPRAM OXALATE
     Indication: Suicide attempt
     Dosage: UNK
     Route: 065
  23. ESOMEPRAZOLE [Interacting]
     Active Substance: ESOMEPRAZOLE
     Indication: Intentional overdose
     Dosage: UNK
     Route: 065
  24. FLUOXETINE HYDROCHLORIDE [Interacting]
     Active Substance: FLUOXETINE HYDROCHLORIDE
     Indication: Suicide attempt
     Dosage: UNK
     Route: 065
  25. VALSARTAN [Interacting]
     Active Substance: VALSARTAN
     Indication: Suicide attempt
     Dosage: UNK
  26. VALSARTAN [Interacting]
     Active Substance: VALSARTAN
     Indication: Intentional overdose

REACTIONS (6)
  - Acute kidney injury [Unknown]
  - Major depression [Unknown]
  - Serotonin syndrome [Unknown]
  - Suicide attempt [Unknown]
  - Metabolic acidosis [Unknown]
  - Physical deconditioning [Unknown]
